FAERS Safety Report 5149394-2 (Version None)
Quarter: 2006Q4

REPORT INFORMATION
  Report Type: 
  Country: None (occurrence: None)
  Receive Date: 20061113
  Receipt Date: 20051219
  Transmission Date: 20070319
  Serious: No
  Sender: FDA-Public Use
  Company Number: 429285

PATIENT
  Age: 64 Year
  Sex: Male

DRUGS (2)
  1. COREG [Suspect]
     Dosage: 25MG TWICE PER DAY
     Route: 048
     Dates: start: 20051207, end: 20051214
  2. MULTIPLE MEDICATIONS [Concomitant]

REACTIONS (1)
  - RASH [None]
